FAERS Safety Report 4486439-7 (Version None)
Quarter: 2004Q4

REPORT INFORMATION
  Report Type: 
  Country: None (occurrence: None)
  Receive Date: 20041026
  Receipt Date: 20041026
  Transmission Date: 20050328
  Serious: Yes (Life-Threatening)
  Sender: FDA-Public Use
  Company Number: None

PATIENT
  Age: 38 Year
  Sex: Male
  Weight: 83.9154 kg

DRUGS (1)
  1. ZOLOFT [Suspect]
     Indication: DEPRESSION
     Dosage: ONCE DAILY ORAL
     Route: 048
     Dates: start: 20040301, end: 20040801

REACTIONS (4)
  - AGGRESSION [None]
  - HOMICIDAL IDEATION [None]
  - PHYSICAL ASSAULT [None]
  - SUICIDAL IDEATION [None]
